FAERS Safety Report 8899791 (Version 1)
Quarter: 2012Q4

REPORT INFORMATION
  Report Type: 
  Country: US (occurrence: US)
  Receive Date: 20121108
  Receipt Date: 20121108
  Transmission Date: 20130627
  Serious: No
  Sender: FDA-Public Use
  Company Number: US-AMGEN-USASP2012032723

PATIENT
  Sex: Female

DRUGS (1)
  1. ENBREL [Suspect]
     Indication: RHEUMATOID ARTHRITIS
     Dosage: 50 mg, qwk
     Dates: start: 2006

REACTIONS (8)
  - Sinus disorder [Unknown]
  - Nasal congestion [Unknown]
  - Headache [Unknown]
  - Myalgia [Unknown]
  - Contusion [Unknown]
  - Hypoaesthesia [Unknown]
  - Feeling of body temperature change [Unknown]
  - Paraesthesia [Unknown]
